FAERS Safety Report 22077639 (Version 1)
Quarter: 2023Q1

REPORT INFORMATION
  Report Type: Spontaneous
  Country: CH (occurrence: CH)
  Receive Date: 20230309
  Receipt Date: 20230309
  Transmission Date: 20230418
  Serious: Yes (Other)
  Sender: FDA-Public Use
  Company Number: CH-STRIDES ARCOLAB LIMITED-2023SP003340

PATIENT
  Age: 90 Year
  Sex: Female

DRUGS (1)
  1. MORPHINE SULFATE [Suspect]
     Active Substance: MORPHINE SULFATE
     Indication: Dyspnoea
     Dosage: 8 MILLIGRAM, QD
     Route: 048

REACTIONS (3)
  - Neurotoxicity [Unknown]
  - Somnolence [Unknown]
  - Off label use [Unknown]
